FAERS Safety Report 5055833-8 (Version None)
Quarter: 2006Q3

REPORT INFORMATION
  Report Type: 
  Country: None (occurrence: None)
  Receive Date: 20060718
  Receipt Date: 20060718
  Transmission Date: 20061208
  Serious: Yes (Death)
  Sender: FDA-Public Use
  Company Number: None

PATIENT
  Sex: Male
  Weight: 74.7 kg

DRUGS (8)
  1. FLUOROURACIL [Suspect]
     Dosage: 744 MG , IV
     Route: 042
     Dates: start: 20060712
  2. LEUCOVORIN CALCIUM [Suspect]
     Dosage: 748 MG
     Dates: start: 20060712
  3. ELOXATIN [Suspect]
     Dosage: 159 MG
     Dates: start: 20060712
  4. HYDROCHLOROTHIAZIDE [Concomitant]
  5. PERCOCET [Concomitant]
  6. PLAVIX [Concomitant]
  7. TOPROL-XL [Concomitant]
  8. ZESTRIL [Concomitant]

REACTIONS (5)
  - APNOEIC ATTACK [None]
  - CARDIAC DISORDER [None]
  - COLON CANCER [None]
  - LOSS OF CONSCIOUSNESS [None]
  - PULSE ABSENT [None]
